FAERS Safety Report 9098320 (Version 1)
Quarter: 2013Q1

REPORT INFORMATION
  Report Type: Spontaneous
  Country: US (occurrence: US)
  Receive Date: 20130213
  Receipt Date: 20130213
  Transmission Date: 20140127
  Serious: Yes (Disabling, Other)
  Sender: FDA-Public Use
  Company Number: CHPA2013US001565

PATIENT
  Age: 82 Year
  Sex: Female

DRUGS (3)
  1. VOLTAREN GEL [Suspect]
     Indication: ARTHRALGIA
     Dosage: 2 LIGHT APPLICATIONS, BID
     Route: 061
     Dates: start: 201212
  2. ALEVE [Concomitant]
     Dosage: UNK
     Dates: start: 20130112
  3. BENGAY                             /00735901/ [Concomitant]

REACTIONS (9)
  - Dysstasia [Unknown]
  - Pain [Unknown]
  - Mobility decreased [Unknown]
  - Myalgia [Unknown]
  - Panic reaction [Unknown]
  - Vomiting [Unknown]
  - Off label use [Unknown]
  - Wrong technique in drug usage process [Unknown]
  - Drug administered at inappropriate site [Unknown]
